FAERS Safety Report 9156909 (Version 2)
Quarter: 2013Q2

REPORT INFORMATION
  Report Type: Spontaneous
  Country: JP (occurrence: JP)
  Receive Date: 20130312
  Receipt Date: 20130403
  Transmission Date: 20140414
  Serious: Yes (Hospitalization, Other)
  Sender: FDA-Public Use
  Company Number: PHHY2013JP013865

PATIENT
  Age: 77 Year
  Sex: Female
  Weight: 51 kg

DRUGS (2)
  1. FEMARA [Suspect]
     Indication: BREAST CANCER
     Dosage: 2.5 MG DAILY
     Route: 048
     Dates: start: 20090630, end: 20130111
  2. ANCARON [Suspect]
     Indication: ARRHYTHMIA
     Dosage: 100 MG, BID
     Route: 048
     Dates: start: 20081113, end: 20130208

REACTIONS (5)
  - Hepatic cirrhosis [Not Recovered/Not Resolved]
  - Liver disorder [Not Recovered/Not Resolved]
  - Transaminases increased [Unknown]
  - Aspartate aminotransferase increased [Unknown]
  - Blood cholinesterase decreased [Unknown]
